FAERS Safety Report 10922553 (Version 1)
Quarter: 2015Q1

REPORT INFORMATION
  Report Type: Spontaneous
  Country: TR (occurrence: TR)
  Receive Date: 20150317
  Receipt Date: 20150317
  Transmission Date: 20150721
  Serious: Yes (Hospitalization)
  Sender: FDA-Public Use
  Company Number: TR-SA-2015SA031345

PATIENT
  Age: 27 Year
  Sex: Female
  Weight: 49 kg

DRUGS (2)
  1. ARAVA [Suspect]
     Active Substance: LEFLUNOMIDE
  2. HUMIRA [Suspect]
     Active Substance: ADALIMUMAB
     Dosage: DOSE: 1X15 DAYS?ROUTE:SC?THERAPY DATES: 2012-ONGOING?INDICATION: PSORIATIC ARTHRITIS.

REACTIONS (2)
  - Exposure during pregnancy [Unknown]
  - Oligohydramnios [Unknown]

NARRATIVE: CASE EVENT DATE: 201411
